FAERS Safety Report 18960026 (Version 5)
Quarter: 2022Q2

REPORT INFORMATION
  Report Type: Report from Study
  Country: GB (occurrence: GB)
  Receive Date: 20210302
  Receipt Date: 20220517
  Transmission Date: 20220720
  Serious: Yes (Other)
  Sender: FDA-Public Use
  Company Number: GB-ROCHE-1732161

PATIENT
  Age: 52 Year
  Sex: Female

DRUGS (60)
  1. DOCETAXEL [Suspect]
     Active Substance: DOCETAXEL
     Indication: Product used for unknown indication
     Dosage: 180 MILLIGRAM, Q3W
     Route: 042
     Dates: start: 20151231, end: 20160212
  2. DOCETAXEL [Suspect]
     Active Substance: DOCETAXEL
     Dosage: 180 MILLIGRAM, Q3W
     Route: 042
     Dates: start: 20160212
  3. DOCETAXEL [Suspect]
     Active Substance: DOCETAXEL
     Dosage: 180 MILLIGRAM, Q3W
     Route: 042
     Dates: start: 20210212
  4. LETROZOLE [Suspect]
     Active Substance: LETROZOLE
     Indication: Product used for unknown indication
     Dosage: 2.5 MILLIGRAM, QD(START DATE: 07-APR-2016)
     Route: 048
  5. PACLITAXEL [Suspect]
     Active Substance: PACLITAXEL
     Indication: Product used for unknown indication
     Dosage: 111 GRAM, Q3W (START DATE: 11-MAR-2016)
     Route: 042
     Dates: end: 20160324
  6. TRASTUZUMAB [Suspect]
     Active Substance: TRASTUZUMAB
     Indication: Breast cancer metastatic
     Dosage: 600 MILLIGRAM, Q3W
     Route: 058
     Dates: start: 20151231
  7. TRASTUZUMAB [Suspect]
     Active Substance: TRASTUZUMAB
     Dosage: 600 MILLIGRAM, Q3W
     Route: 058
     Dates: start: 20200619
  8. ACYCLOVIR [Concomitant]
     Active Substance: ACYCLOVIR
     Indication: Product used for unknown indication
     Dosage: UNK, BID (START DATE:06-JUN-2019)
     Route: 048
     Dates: end: 20190627
  9. ACYCLOVIR [Concomitant]
     Active Substance: ACYCLOVIR
     Dosage: 15 MILLIGRAM
     Dates: start: 20200710
  10. ACYCLOVIR [Concomitant]
     Active Substance: ACYCLOVIR
     Dosage: UNK UNK, QD, 0.5 OT, QD
     Route: 048
     Dates: start: 20190606, end: 20190627
  11. CARBOMER [Concomitant]
     Active Substance: CARBOMER
     Indication: Product used for unknown indication
     Dosage: 1 GTT DROPS, PRN/AS NEEDED/DROP (1/12 MILLILITRE))(START:06-JUL-2016)
     Route: 047
  12. CETIRIZINE [Concomitant]
     Active Substance: CETIRIZINE HYDROCHLORIDE
     Indication: Product used for unknown indication
     Dosage: 10 MILLIGRAM, PRN,DAILY AS NEEDED(START:11-SEP-2017)
     Route: 048
  13. CLOBETASONE [Concomitant]
     Active Substance: CLOBETASONE
     Indication: Product used for unknown indication
     Dosage: UNK
     Route: 061
  14. COCODAMOL [Concomitant]
     Active Substance: ACETAMINOPHEN\CODEINE PHOSPHATE
     Indication: Product used for unknown indication
     Dosage: UNK UNK, PRN,AS NEEDED (START:19-JUL-2019 )
     Route: 048
  15. DEXAMETHASONE SODIUM PHOSPHATE [Concomitant]
     Active Substance: DEXAMETHASONE SODIUM PHOSPHATE
     Indication: Product used for unknown indication
     Dosage: 1 GTT DROPS, BID (START:19-NOV-2019)
     Route: 047
     Dates: end: 20191126
  16. DEXAMETHASONE SODIUM PHOSPHATE [Concomitant]
     Active Substance: DEXAMETHASONE SODIUM PHOSPHATE
     Dosage: 1 GTT DROPS, QD
     Route: 047
     Dates: start: 20191127
  17. ESTRIOL [Concomitant]
     Active Substance: ESTRIOL
     Indication: Product used for unknown indication
     Dosage: 0.1 PERCENT (PRN (2-3 WEEKS)
     Route: 067
     Dates: start: 20150415
  18. EUCALYPTUS OIL [Concomitant]
     Active Substance: EUCALYPTUS OIL
     Indication: Product used for unknown indication
     Dosage: UNK UNK, QD (START:19-DEC-2019 )
     Route: 061
     Dates: end: 20191219
  19. EUMOVATE [Concomitant]
     Active Substance: CLOBETASONE BUTYRATE
     Indication: Product used for unknown indication
     Dosage: UNK UNK, PRN/AS NEEDED (START: APR-2019)
     Route: 061
     Dates: end: 20190502
  20. EURAX [Concomitant]
     Active Substance: CROTAMITON
     Indication: Product used for unknown indication
     Dosage: UNK UNK, PRN/AS NEEDED (START:16-MAY-2019)
     Route: 061
     Dates: end: 201906
  21. EURAX [Concomitant]
     Active Substance: CROTAMITON
     Dosage: UNK UNK, BID
     Route: 061
     Dates: start: 20200109
  22. FEXOFENADINE [Concomitant]
     Active Substance: FEXOFENADINE HYDROCHLORIDE
     Indication: Product used for unknown indication
     Dosage: 180 MILLIGRAM, QD (START:04-MAY-2017)
     Route: 048
     Dates: end: 20170519
  23. FEXOFENADINE [Concomitant]
     Active Substance: FEXOFENADINE HYDROCHLORIDE
     Dosage: 180 MILLIGRAM, PRN/AS NEEDED
     Route: 048
     Dates: start: 20180222, end: 20180422
  24. FEXOFENADINE [Concomitant]
     Active Substance: FEXOFENADINE HYDROCHLORIDE
     Dosage: 180 MILLIGRAM
     Route: 048
     Dates: start: 20190516
  25. FEXOFENADINE [Concomitant]
     Active Substance: FEXOFENADINE HYDROCHLORIDE
     Dosage: 180 MILLIGRAM, PRN/AS NEEDED
     Route: 048
     Dates: start: 20190516
  26. HYPROMELLOSES [Concomitant]
     Active Substance: HYPROMELLOSES
     Indication: Product used for unknown indication
     Dosage: UNK (START:31-AUG-2016)
     Route: 065
  27. LOPERAMIDE [Concomitant]
     Active Substance: LOPERAMIDE
     Indication: Diarrhoea
     Dosage: 1 DF, QD (1 CAPSULE AS NEEDED)
     Route: 048
     Dates: start: 20150415
  28. LOPERAMIDE [Concomitant]
     Active Substance: LOPERAMIDE
     Dosage: 2 MILLIGRAM
     Route: 048
     Dates: start: 20200619
  29. MOMETASONE [Concomitant]
     Active Substance: MOMETASONE
     Dosage: 2 DOSAGE FORM, QD,  (2 PUFF)
     Route: 065
     Dates: start: 20120925
  30. OMEPRAZOLE [Concomitant]
     Active Substance: OMEPRAZOLE
     Indication: Product used for unknown indication
     Dosage: 20 MILLIGRAM (START:12-FEB-2016 )
     Route: 048
  31. ACETAMINOPHEN [Concomitant]
     Active Substance: ACETAMINOPHEN
     Indication: Product used for unknown indication
     Dosage: 1 GRAM, PRN,  (START :2017)
     Route: 048
  32. PARAFFIN WHITE [Concomitant]
     Dosage: AS NEEDED (START:03-APR-2018)
     Route: 061
  33. PEPPERMINT OIL [Concomitant]
     Active Substance: PEPPERMINT OIL
     Indication: Product used for unknown indication
     Dosage: UNK UNK, QD (START:19-DEC-2019)
     Route: 061
     Dates: end: 20191219
  34. CHLORPHENIRAMINE MALEATE [Concomitant]
     Active Substance: CHLORPHENIRAMINE MALEATE
     Dosage: UNK UNK, QD (START:03-MAY-2017)
     Route: 048
     Dates: end: 20170503
  35. CHLORPHENIRAMINE MALEATE [Concomitant]
     Active Substance: CHLORPHENIRAMINE MALEATE
     Dosage: 4 MILLIGRAM, MONTHLY
     Route: 048
     Dates: start: 201904, end: 20190502
  36. CHLORPHENIRAMINE MALEATE [Concomitant]
     Active Substance: CHLORPHENIRAMINE MALEATE
     Dosage: 4 MILLIGRAM, 4-6 HOURLY
     Route: 048
     Dates: start: 20190502, end: 20190515
  37. CHLORPHENIRAMINE MALEATE [Concomitant]
     Active Substance: CHLORPHENIRAMINE MALEATE
     Dosage: 4 MILLIGRAM, QD
     Route: 048
     Dates: start: 201904, end: 20190502
  38. EVENING PRIMROSE OIL\HERBALS [Concomitant]
     Active Substance: EVENING PRIMROSE OIL\HERBALS
     Indication: Product used for unknown indication
     Dosage: UNK, QD (START: 2017)
     Route: 048
  39. ALBUTEROL [Concomitant]
     Active Substance: ALBUTEROL
     Indication: Product used for unknown indication
     Dosage: UNK
     Route: 065
     Dates: start: 20000418
  40. ALBUTEROL [Concomitant]
     Active Substance: ALBUTEROL
     Dosage: 2 DOSAGE FORM, PRN, 2 PUFF AS NEEDED
     Route: 065
     Dates: start: 20000413
  41. ALMOND OIL [Concomitant]
     Active Substance: ALMOND OIL
     Dosage: UNK UNK, QD(START:19-DEC-2019)
     Route: 061
     Dates: end: 20191219
  42. ALMOND OIL [Concomitant]
     Active Substance: ALMOND OIL
     Dosage: UNK UNK, QD
     Route: 061
     Dates: start: 20200117, end: 20200117
  43. ALMOND OIL [Concomitant]
     Active Substance: ALMOND OIL
     Dosage: UNK,ONCE
     Route: 061
     Dates: start: 20200117, end: 20200117
  44. SYMBICORT [Concomitant]
     Active Substance: BUDESONIDE\FORMOTEROL FUMARATE DIHYDRATE
     Dosage: UNK UNK, BID (START:20-JUL-2019)
     Route: 055
  45. SYMBICORT [Concomitant]
     Active Substance: BUDESONIDE\FORMOTEROL FUMARATE DIHYDRATE
     Dosage: UNK~1 PUFF AS NEEDED.
     Route: 065
     Dates: start: 20151115
  46. SYSTANE (HYPROMELLOSE 2910 (4000 MPA.S)) [Concomitant]
     Active Substance: HYPROMELLOSE 2910 (4000 MPA.S)
     Indication: Product used for unknown indication
     Dosage: 1 GTT DROPS, PRN/AS NEEDED
     Route: 047
  47. TEA TREE OIL [Concomitant]
     Active Substance: TEA TREE OIL
     Indication: Product used for unknown indication
     Dosage: AS NEEDED (START: 29-OCT-2019)
     Route: 047
     Dates: end: 20191031
  48. CHLORHEXIDINE [Concomitant]
     Active Substance: CHLORHEXIDINE
     Indication: Product used for unknown indication
     Dosage: 10 MILLIGRAM (START:10-JUL-2020)
     Route: 065
  49. HYDROCORTISONE [Concomitant]
     Active Substance: HYDROCORTISONE
     Indication: Product used for unknown indication
     Dosage: 2.5 MILLIGRAM, QID (START:10-JUN-2020 )
     Route: 002
  50. HYDROCORTISONE [Concomitant]
     Active Substance: HYDROCORTISONE
     Dosage: 2.5 MILLIGRAM, QID
     Route: 002
     Dates: start: 20200710
  51. LAVENDER OIL [Concomitant]
     Active Substance: LAVENDER OIL
     Indication: Product used for unknown indication
     Dosage: UNK UNK, QD (START:17-JAN-2020)
     Route: 061
     Dates: end: 20200117
  52. LAVENDER OIL [Concomitant]
     Active Substance: LAVENDER OIL
     Dosage: UNK UNK, QD
     Route: 061
     Dates: start: 20200617, end: 20200617
  53. METOCLOPRAMIDE [Concomitant]
     Active Substance: METOCLOPRAMIDE
     Indication: Product used for unknown indication
     Dosage: 10 MILLIGRAM (START:19-JUN-2020 )
     Route: 048
  54. NITROFURANTOIN [Concomitant]
     Active Substance: NITROFURANTOIN
     Indication: Product used for unknown indication
     Dosage: 100 MILLIGRAM (START:07-APR-2020 )
     Route: 048
     Dates: end: 20200410
  55. SODIUM HYALURONATE [Concomitant]
     Active Substance: HYALURONATE SODIUM
     Indication: Product used for unknown indication
     Dosage: UNK,AS NEEDED (START:29-OCT-2019)
     Route: 047
  56. HYALURONIC ACID [Concomitant]
     Active Substance: HYALURONIC ACID
     Indication: Product used for unknown indication
     Dosage: UNK, AS NEEDED (START:26-FEB-2018)
     Route: 061
  57. BENZYDAMINE [Concomitant]
     Active Substance: BENZYDAMINE
     Indication: Product used for unknown indication
     Dosage: 15 MILLIGRAM (START:10-JUL-2020)
     Route: 065
  58. CITRUS BERGAMIA [Concomitant]
     Dosage: UNK,ONCE (START:17-JAN-2020 )
     Route: 061
     Dates: end: 20200117
  59. WOOL FAT [Concomitant]
     Dosage: UNK, AS NEEDED (START:03-APR-2018)
     Route: 061
  60. PARAFFIN [Concomitant]
     Active Substance: PARAFFIN
     Dosage: UNK, AS NEEDED (START:03-APR-2018)
     Route: 061

REACTIONS (10)
  - Neuropathy peripheral [Recovered/Resolved]
  - Skin ulcer [Recovered/Resolved]
  - Nail disorder [Recovered/Resolved]
  - Mass [Recovered/Resolved]
  - Abdominal pain [Recovered/Resolved]
  - Pain [Recovered/Resolved]
  - Alopecia [Recovered/Resolved]
  - Extravasation [Recovered/Resolved]
  - Fatigue [Recovered/Resolved]
  - Nausea [Recovered/Resolved]

NARRATIVE: CASE EVENT DATE: 20160211
